FAERS Safety Report 9848118 (Version 2)
Quarter: 2014Q1

REPORT INFORMATION
  Report Type: Spontaneous
  Country: US (occurrence: US)
  Receive Date: 20140128
  Receipt Date: 20140314
  Transmission Date: 20141002
  Serious: No
  Sender: FDA-Public Use
  Company Number: US-PFIZER INC-2014021993

PATIENT
  Sex: Female

DRUGS (1)
  1. GLIPIZIDE [Suspect]
     Dosage: UNK

REACTIONS (4)
  - Blood glucose decreased [Unknown]
  - Weight increased [Unknown]
  - Fluid retention [Unknown]
  - Drug hypersensitivity [Unknown]
